FAERS Safety Report 4845262-1 (Version None)
Quarter: 2005Q4

REPORT INFORMATION
  Report Type: 
  Country: None (occurrence: None)
  Receive Date: 20051128
  Receipt Date: 20051122
  Transmission Date: 20060501
  Serious: Yes (Death, Other)
  Sender: FDA-Public Use
  Company Number: 2005-US-00026

PATIENT
  Age: 58 Year
  Sex: Female

DRUGS (1)
  1. CLOZAPINE [Suspect]
     Indication: SCHIZOPHRENIA, PARANOID TYPE
     Dosage: 500 MG, ORAL
     Route: 048
     Dates: start: 20050501, end: 20050822

REACTIONS (2)
  - MULTI-ORGAN DISORDER [None]
  - PANCYTOPENIA [None]
